FAERS Safety Report 23208063 (Version 1)
Quarter: 2023Q4

REPORT INFORMATION
  Report Type: Other
  Country: CA (occurrence: CA)
  Receive Date: 20231121
  Receipt Date: 20231121
  Transmission Date: 20240110
  Serious: Yes (Other)
  Sender: FDA-Public Use
  Company Number: CA-INTERCEPT-PM2022001255

PATIENT
  Age: 78 Year
  Sex: Female

DRUGS (2)
  1. OCALIVA [Suspect]
     Active Substance: OBETICHOLIC ACID
     Indication: Primary biliary cholangitis
     Dosage: 5 MG, QD
     Route: 048
     Dates: start: 20210704
  2. URSODIOL [Concomitant]
     Active Substance: URSODIOL
     Dosage: 500 MG, BID (SINCE YEARS THEN GIVEN IN COMBINATION OF OCALIVA)
     Dates: start: 2018

REACTIONS (5)
  - Thrombocytopenia [Unknown]
  - Aspartate aminotransferase abnormal [Unknown]
  - Memory impairment [Unknown]
  - Blood alkaline phosphatase abnormal [Unknown]
  - Rash macular [Unknown]

NARRATIVE: CASE EVENT DATE: 20220601
